FAERS Safety Report 7349643-6 (Version None)
Quarter: 2011Q1

REPORT INFORMATION
  Report Type: 
  Country: None (occurrence: None)
  Receive Date: 20110314
  Receipt Date: 20100819
  Transmission Date: 20110831
  Serious: No
  Sender: FDA-Public Use
  Company Number: A0877767A

PATIENT
  Age: 35 Year
  Sex: Male

DRUGS (1)
  1. AUGMENTIN '125' [Suspect]

REACTIONS (3)
  - URTICARIA [None]
  - SWELLING [None]
  - HYPERSENSITIVITY [None]
